FAERS Safety Report 5266715-0 (Version None)
Quarter: 2007Q1

REPORT INFORMATION
  Report Type: 
  Country: None (occurrence: None)
  Receive Date: 20070312
  Receipt Date: 20070226
  Transmission Date: 20070707
  Serious: Yes (Other)
  Sender: FDA-Public Use
  Company Number: GB-1161312

PATIENT
  Age: 74 Year
  Sex: Male
  Weight: 80 kg

DRUGS (2)
  1. MYDRIACYL [Suspect]
     Dosage: EYE DROPS; SOLUTION
     Route: 047
     Dates: start: 20070201, end: 20070201
  2. TAMSULOSIN HCL [Concomitant]

REACTIONS (2)
  - ANGLE CLOSURE GLAUCOMA [None]
  - IRIS DISORDER [None]
